FAERS Safety Report 13426721 (Version 1)
Quarter: 2017Q2

REPORT INFORMATION
  Report Type: Report from Study
  Country: None (occurrence: US)
  Receive Date: 20170411
  Receipt Date: 20170411
  Transmission Date: 20170830
  Serious: Yes (Other)
  Sender: FDA-Public Use
  Company Number: US-ABBVIE-17K-163-1936751-00

PATIENT
  Age: 66 Year
  Sex: Male
  Weight: 79.9 kg

DRUGS (3)
  1. PREDNISONE. [Suspect]
     Active Substance: PREDNISONE
     Indication: PSORIATIC ARTHROPATHY
     Route: 048
     Dates: start: 201602, end: 201609
  2. HUMIRA [Suspect]
     Active Substance: ADALIMUMAB
     Indication: PSORIATIC ARTHROPATHY
     Route: 058
     Dates: start: 2015, end: 2015
  3. METHOTREXATE. [Concomitant]
     Active Substance: METHOTREXATE
     Indication: PSORIATIC ARTHROPATHY
     Dates: start: 201602

REACTIONS (14)
  - Dyspnoea [Not Recovered/Not Resolved]
  - Increased appetite [Recovered/Resolved]
  - Joint effusion [Recovered/Resolved]
  - Asthenia [Not Recovered/Not Resolved]
  - Depression [Recovered/Resolved]
  - Meniscus injury [Recovered/Resolved]
  - Inflammatory marker increased [Not Recovered/Not Resolved]
  - Cushingoid [Recovered/Resolved]
  - Myocardial fibrosis [Not Recovered/Not Resolved]
  - Weight increased [Recovered/Resolved]
  - Fatigue [Recovered/Resolved]
  - Anaemia [Not Recovered/Not Resolved]
  - Meniscus injury [Recovered/Resolved]
  - Psoriatic arthropathy [Not Recovered/Not Resolved]

NARRATIVE: CASE EVENT DATE: 2015
